FAERS Safety Report 19698480 (Version 1)
Quarter: 2021Q3

REPORT INFORMATION
  Report Type: Spontaneous
  Country: PR (occurrence: PR)
  Receive Date: 20210813
  Receipt Date: 20210813
  Transmission Date: 20211014
  Serious: Yes (Death)
  Sender: FDA-Public Use
  Company Number: PR-BAYER-2021-192133

PATIENT
  Age: 40 Year
  Sex: Male

DRUGS (2)
  1. STIVARGA [Suspect]
     Active Substance: REGORAFENIB
     Indication: BONE CANCER
     Dosage: DAILY DOSE 80 MG FOR 21 DAYS AND 7 DAYS OFF
     Dates: start: 20201001
  2. STIVARGA [Suspect]
     Active Substance: REGORAFENIB
     Indication: MALIGNANT JOINT NEOPLASM

REACTIONS (2)
  - Off label use [None]
  - Death [Fatal]

NARRATIVE: CASE EVENT DATE: 20201001
